FAERS Safety Report 6084843-7 (Version None)
Quarter: 2009Q1

REPORT INFORMATION
  Report Type: 
  Country: None (occurrence: None)
  Receive Date: 20090218
  Receipt Date: 20090206
  Transmission Date: 20090719
  Serious: Yes (Hospitalization)
  Sender: FDA-Public Use
  Company Number: JPI-P-005922

PATIENT
  Age: 29 Year
  Sex: Female

DRUGS (11)
  1. XYREM [Suspect]
     Indication: CATAPLEXY
     Dosage: 4.5 GM (2.25 GM, 2 IN 1 D) ,ORAL; 6 GM (3 GM, 2 IN 1 D) ,ORAL; 9 GM (4.5 GM, 2 IN 1 D) ,ORAL
     Route: 048
     Dates: start: 20081219, end: 20081228
  2. XYREM [Suspect]
     Indication: NARCOLEPSY
     Dosage: 4.5 GM (2.25 GM, 2 IN 1 D) ,ORAL; 6 GM (3 GM, 2 IN 1 D) ,ORAL; 9 GM (4.5 GM, 2 IN 1 D) ,ORAL
     Route: 048
     Dates: start: 20081219, end: 20081228
  3. XYREM [Suspect]
     Indication: CATAPLEXY
     Dosage: 4.5 GM (2.25 GM, 2 IN 1 D) ,ORAL; 6 GM (3 GM, 2 IN 1 D) ,ORAL; 9 GM (4.5 GM, 2 IN 1 D) ,ORAL
     Route: 048
     Dates: start: 20081229, end: 20090101
  4. XYREM [Suspect]
     Indication: NARCOLEPSY
     Dosage: 4.5 GM (2.25 GM, 2 IN 1 D) ,ORAL; 6 GM (3 GM, 2 IN 1 D) ,ORAL; 9 GM (4.5 GM, 2 IN 1 D) ,ORAL
     Route: 048
     Dates: start: 20081229, end: 20090101
  5. XYREM [Suspect]
     Indication: CATAPLEXY
     Dosage: 4.5 GM (2.25 GM, 2 IN 1 D) ,ORAL; 6 GM (3 GM, 2 IN 1 D) ,ORAL; 9 GM (4.5 GM, 2 IN 1 D) ,ORAL
     Route: 048
     Dates: start: 20090101, end: 20090121
  6. XYREM [Suspect]
     Indication: NARCOLEPSY
     Dosage: 4.5 GM (2.25 GM, 2 IN 1 D) ,ORAL; 6 GM (3 GM, 2 IN 1 D) ,ORAL; 9 GM (4.5 GM, 2 IN 1 D) ,ORAL
     Route: 048
     Dates: start: 20090101, end: 20090121
  7. MODAFINIL [Concomitant]
  8. GLYBURIDE [Concomitant]
  9. ESCITALOPRAM OXALATE [Concomitant]
  10. SIMVASTATIN [Concomitant]
  11. LEVOTHYROXINE SODIUM [Concomitant]

REACTIONS (6)
  - BIPOLAR DISORDER [None]
  - CATAPLEXY [None]
  - DIARRHOEA [None]
  - FALL [None]
  - NAUSEA [None]
  - VOMITING [None]
